FAERS Safety Report 24339839 (Version 1)
Quarter: 2024Q3

REPORT INFORMATION
  Report Type: Spontaneous
  Country: US (occurrence: US)
  Receive Date: 20240919
  Receipt Date: 20240919
  Transmission Date: 20241017
  Serious: No
  Sender: PFIZER
  Company Number: US-PFIZER INC-202400055734

PATIENT
  Age: 46 Year
  Sex: Male

DRUGS (5)
  1. CIBINQO [Suspect]
     Active Substance: ABROCITINIB
     Indication: Dermatitis atopic
     Dosage: 1 TABLET PO (PER ORAL) QD (ONCE A DAY)
     Route: 048
  2. CIBINQO [Suspect]
     Active Substance: ABROCITINIB
     Indication: Rash erythematous
     Dosage: 100 MG, 1X/DAY (1/2 OF THE DOSE, 200MG)
  3. CIBINQO [Suspect]
     Active Substance: ABROCITINIB
     Indication: Skin exfoliation
  4. CIBINQO [Suspect]
     Active Substance: ABROCITINIB
     Indication: Skin erosion
  5. CIBINQO [Suspect]
     Active Substance: ABROCITINIB
     Indication: Purpura

REACTIONS (1)
  - Acne [Recovered/Resolved]
